FAERS Safety Report 16754451 (Version 11)
Quarter: 2022Q4

REPORT INFORMATION
  Report Type: Spontaneous
  Country: US (occurrence: US)
  Receive Date: 20190829
  Receipt Date: 20221124
  Transmission Date: 20230113
  Serious: Yes (Other)
  Sender: FDA-Public Use
  Company Number: US-PFIZER INC-2019368412

PATIENT
  Age: 71 Year
  Sex: Female
  Weight: 66.213 kg

DRUGS (4)
  1. PREMARIN [Suspect]
     Active Substance: ESTROGENS, CONJUGATED
     Indication: Vulvovaginal dryness
     Dosage: 1 G, 2X/WEEK
     Route: 067
  2. PREMARIN [Suspect]
     Active Substance: ESTROGENS, CONJUGATED
     Indication: Vulvovaginal pruritus
     Dosage: UNK, 2X/WEEK
     Route: 067
  3. PREMARIN [Suspect]
     Active Substance: ESTROGENS, CONJUGATED
     Indication: Atrophic vulvovaginitis
     Dosage: 1 G, 2X/WEEK
  4. ESTRING [Concomitant]
     Active Substance: ESTRADIOL
     Dosage: UNK

REACTIONS (7)
  - Ear neoplasm [Unknown]
  - Cyst [Unknown]
  - Drug ineffective [Unknown]
  - Therapeutic response unexpected [Not Recovered/Not Resolved]
  - Hot flush [Unknown]
  - Off label use [Unknown]
  - Intentional product misuse [Unknown]
